FAERS Safety Report 23971001 (Version 1)
Quarter: 2024Q2

REPORT INFORMATION
  Report Type: Spontaneous
  Country: IT (occurrence: IT)
  Receive Date: 20240613
  Receipt Date: 20240613
  Transmission Date: 20240716
  Serious: Yes (Other)
  Sender: FDA-Public Use
  Company Number: IT-MINISAL02-988339

PATIENT
  Age: 18 Year
  Sex: Female

DRUGS (9)
  1. ACETAMINOPHEN [Suspect]
     Active Substance: ACETAMINOPHEN
     Indication: Product used for unknown indication
     Dosage: 6/7 CP
     Route: 048
     Dates: start: 20240527
  2. IBUPROFEN [Suspect]
     Active Substance: IBUPROFEN
     Indication: Product used for unknown indication
     Dosage: 600 MILLIGRAM 5/6 CP
     Route: 048
     Dates: start: 20240527
  3. FELDENE [Suspect]
     Active Substance: PIROXICAM
     Indication: Product used for unknown indication
     Dosage: 2/3 CP
     Route: 048
     Dates: start: 20240527
  4. CLOZAPINE [Concomitant]
     Active Substance: CLOZAPINE
     Indication: Product used for unknown indication
     Dosage: 25 MILLIGRAM
     Route: 065
  5. CLOZAPINE [Concomitant]
     Active Substance: CLOZAPINE
     Dosage: 100 MILLIGRAM
     Route: 065
  6. Folina [Concomitant]
     Indication: Product used for unknown indication
     Dosage: 5 MILLIGRAM
     Route: 065
  7. ETHINYL ESTRADIOL\LEVONORGESTREL [Concomitant]
     Active Substance: ETHINYL ESTRADIOL\LEVONORGESTREL
     Indication: Product used for unknown indication
     Dosage: UNK
     Route: 065
  8. LITHIUM SULFATE [Concomitant]
     Active Substance: LITHIUM SULFATE
     Indication: Product used for unknown indication
     Dosage: 83 MILLIGRAM
     Route: 065
  9. DIAZEPAM [Concomitant]
     Active Substance: DIAZEPAM
     Indication: Product used for unknown indication
     Dosage: UNK
     Route: 065

REACTIONS (2)
  - Drug abuse [Recovering/Resolving]
  - Sopor [Recovering/Resolving]

NARRATIVE: CASE EVENT DATE: 20240527
